FAERS Safety Report 4524459-4 (Version None)
Quarter: 2004Q4

REPORT INFORMATION
  Report Type: 
  Country: None (occurrence: None)
  Receive Date: 20041116
  Receipt Date: 20040922
  Transmission Date: 20050328
  Serious: No
  Sender: FDA-Public Use
  Company Number: PHEH2004US10247

PATIENT
  Sex: Female

DRUGS (1)
  1. GLEEVEC [Suspect]
     Dates: start: 20040601, end: 20040601

REACTIONS (3)
  - ARTHRALGIA [None]
  - OEDEMA PERIPHERAL [None]
  - WALKING DISABILITY [None]
